FAERS Safety Report 6502463-4 (Version None)
Quarter: 2009Q4

REPORT INFORMATION
  Report Type: 
  Country: None (occurrence: None)
  Receive Date: 20091216
  Receipt Date: 20091207
  Transmission Date: 20100525
  Serious: Yes (Hospitalization, Other)
  Sender: FDA-Public Use
  Company Number: FR-JNJFOC-20091203100

PATIENT
  Sex: Male

DRUGS (12)
  1. RISPERDAL [Suspect]
     Indication: DEMENTIA
     Route: 048
  2. RISPERDAL [Suspect]
     Route: 048
  3. ATENOLOL [Suspect]
     Indication: HYPERTENSION
     Route: 048
  4. LOXEN [Suspect]
     Indication: HYPERTENSION
     Route: 048
  5. ATARAX [Suspect]
     Indication: DRUG USE FOR UNKNOWN INDICATION
     Route: 065
  6. FUROSEMIDE [Concomitant]
     Route: 065
  7. ALFACALCIDOL [Concomitant]
     Route: 065
  8. VITAMIN D [Concomitant]
     Route: 065
  9. CALCIUM [Concomitant]
     Route: 065
  10. VASTAREL [Concomitant]
     Route: 065
  11. KARDEGIC [Concomitant]
     Route: 065
  12. DAFALGAN [Concomitant]
     Route: 065

REACTIONS (6)
  - BLADDER DILATATION [None]
  - BRADYCARDIA [None]
  - CONFUSIONAL STATE [None]
  - FALL [None]
  - HYPOTENSION [None]
  - RENAL FAILURE [None]
